FAERS Safety Report 23421004 (Version 1)
Quarter: 2024Q1

REPORT INFORMATION
  Report Type: Spontaneous
  Country: FR (occurrence: FR)
  Receive Date: 20240119
  Receipt Date: 20240119
  Transmission Date: 20240409
  Serious: Yes (Hospitalization)
  Sender: FDA-Public Use
  Company Number: None

PATIENT
  Age: 58 Year
  Sex: Male
  Weight: 56 kg

DRUGS (6)
  1. CLONAZEPAM [Suspect]
     Active Substance: CLONAZEPAM
     Indication: Seizure
     Dosage: SOLUTIONS FOR DILUTION FOR INJECTION IN AMPOULES
     Route: 042
     Dates: start: 20190601, end: 20190602
  2. Spasfon [Concomitant]
     Indication: Pain
     Route: 048
     Dates: start: 20190520, end: 20190601
  3. INNOHEP [Concomitant]
     Active Substance: TINZAPARIN SODIUM
     Indication: Thrombosis prophylaxis
     Dosage: 4 500 IU ANTI-XA/0.45 ML, SOLUTION FOR INJECTION (S.C.) IN PRE-FILLED PRE-FILLED SYRINGE
     Route: 058
     Dates: start: 20190523, end: 20190601
  4. LOVENOX [Concomitant]
     Active Substance: ENOXAPARIN SODIUM
     Dosage: 4000 IU ANTI-XA/0.4 ML, SOLUTION FOR INJECTION IN PRE-FILLED SYRINGE?DAILY DOSE: 1 DOSAGE FORM
     Route: 057
     Dates: start: 20190520, end: 20190523
  5. ACETAMINOPHEN [Concomitant]
     Active Substance: ACETAMINOPHEN
     Indication: Pain
     Dosage: DAILY DOSE: 3 GRAM
     Route: 048
     Dates: start: 20190520, end: 20190601
  6. TRAMADOL [Concomitant]
     Active Substance: TRAMADOL\TRAMADOL HYDROCHLORIDE
     Indication: Pain
     Route: 048
     Dates: start: 20190520, end: 20190601

REACTIONS (1)
  - Agranulocytosis [Recovered/Resolved]

NARRATIVE: CASE EVENT DATE: 20190604
